FAERS Safety Report 7103544-7 (Version None)
Quarter: 2010Q4

REPORT INFORMATION
  Report Type: 
  Country: None (occurrence: None)
  Receive Date: 20101115
  Receipt Date: 20101105
  Transmission Date: 20110411
  Serious: Yes (Other)
  Sender: FDA-Public Use
  Company Number: US-BAYER-201023549BCC

PATIENT
  Age: 52 Year
  Sex: Female
  Weight: 77 kg

DRUGS (6)
  1. BAYER QUICK RELEASE CRYSTALS [Suspect]
     Indication: ISCHAEMIC HEART DISEASE PROPHYLAXIS
     Route: 048
  2. EXTRA STRENGTH BAYER PLUS [Suspect]
     Indication: ISCHAEMIC HEART DISEASE PROPHYLAXIS
     Route: 048
  3. AMBIEN [Concomitant]
  4. AMITRIPTYLINE HCL [Concomitant]
  5. DARVON [Concomitant]
  6. LISINOPRIL [Concomitant]

REACTIONS (2)
  - HALLUCINATION [None]
  - MIDDLE INSOMNIA [None]
